FAERS Safety Report 8024444-4 (Version None)
Quarter: 2012Q1

REPORT INFORMATION
  Report Type: 
  Country: None (occurrence: None)
  Receive Date: 20120103
  Receipt Date: 20111219
  Transmission Date: 20120608
  Serious: Yes (Other)
  Sender: FDA-Public Use
  Company Number: 2011SP055422

PATIENT
  Age: 57 Year
  Sex: Male

DRUGS (11)
  1. VICTRELIS [Suspect]
     Indication: HEPATITIS C
     Dosage: 800 MG;Q8H;PO
     Route: 048
     Dates: start: 20111101
  2. PEGASYS [Suspect]
     Indication: PRODUCT USED FOR UNKNOWN INDICATION
     Dosage: 135 MCG;QW
  3. TAMSULOSIN HCL [Concomitant]
  4. WELLBUTRIN [Concomitant]
  5. AMLODIPINE [Concomitant]
  6. ZOLPIDEM [Concomitant]
  7. LISINOPRIL [Concomitant]
  8. HYDROCHLOROTHIAZIDE [Concomitant]
  9. DOXAZOCIN [Concomitant]
  10. RIBAVIRIN [Suspect]
     Indication: PRODUCT USED FOR UNKNOWN INDICATION
     Dosage: BID
  11. IBUPROFEN (ADVIL) [Concomitant]

REACTIONS (1)
  - PANIC ATTACK [None]
